FAERS Safety Report 18127609 (Version 1)
Quarter: 2020Q3

REPORT INFORMATION
  Report Type: Spontaneous
  Country: MY (occurrence: MY)
  Receive Date: 20200810
  Receipt Date: 20200810
  Transmission Date: 20201103
  Serious: Yes (Other)
  Sender: FDA-Public Use
  Company Number: MY-ROCHE-2455323

PATIENT
  Age: 31 Year
  Sex: Female

DRUGS (21)
  1. MABTHERA [Suspect]
     Active Substance: RITUXIMAB
     Dosage: RCHOP X 6 CYCLES
     Route: 042
  2. METHOTREXATE. [Suspect]
     Active Substance: METHOTREXATE
     Indication: DIFFUSE LARGE B-CELL LYMPHOMA
     Dosage: MTX BASED CHEMOTHERAPY
     Route: 065
  3. CYCLOPHOSPHAMIDE. [Suspect]
     Active Substance: CYCLOPHOSPHAMIDE
     Dosage: RCHOP X 6 CYCLES
     Route: 065
  4. DEXAMETHASONE. [Suspect]
     Active Substance: DEXAMETHASONE
     Indication: DIFFUSE LARGE B-CELL LYMPHOMA
     Dosage: R?HYPERCVAD 2 CYCLES
     Route: 065
     Dates: start: 20190115, end: 20190205
  5. GEMCITABINE. [Suspect]
     Active Substance: GEMCITABINE
     Dosage: GEMOX X 1 CYCLE
     Route: 065
  6. VINCRISTINE [Suspect]
     Active Substance: VINCRISTINE
     Indication: DIFFUSE LARGE B-CELL LYMPHOMA
     Dosage: R?HYPERCVAD 2 CYCLES
     Route: 065
     Dates: start: 20190115, end: 20190205
  7. ADRIAMYCIN [Suspect]
     Active Substance: DOXORUBICIN HYDROCHLORIDE
     Indication: DIFFUSE LARGE B-CELL LYMPHOMA
     Dosage: R?HYPERCVAD 2 CYCLES
     Route: 065
     Dates: start: 20190115, end: 20190205
  8. DOXORUBICIN [Suspect]
     Active Substance: DOXORUBICIN
     Dosage: HYPERCVAD B X 2 CYCLES
     Route: 065
  9. CISPLATIN. [Suspect]
     Active Substance: CISPLATIN
     Indication: DIFFUSE LARGE B-CELL LYMPHOMA
     Dosage: GDP
     Route: 065
  10. CARBOPLATIN. [Suspect]
     Active Substance: CARBOPLATIN
     Indication: DIFFUSE LARGE B-CELL LYMPHOMA
     Dosage: R?ICE 4 CYCLES
     Route: 065
     Dates: start: 20190614, end: 20190816
  11. MABTHERA [Suspect]
     Active Substance: RITUXIMAB
     Indication: DIFFUSE LARGE B-CELL LYMPHOMA
     Dosage: R?HYPERCVAD 2 CYCLES
     Route: 042
     Dates: start: 20190115, end: 20190205
  12. IFOSFAMIDE. [Suspect]
     Active Substance: IFOSFAMIDE
     Indication: DIFFUSE LARGE B-CELL LYMPHOMA
     Dosage: R?ICE 4 CYCLES
     Route: 065
     Dates: start: 20190614, end: 20190816
  13. GEMCITABINE. [Suspect]
     Active Substance: GEMCITABINE
     Indication: DIFFUSE LARGE B-CELL LYMPHOMA
     Dosage: GDP
     Route: 065
  14. VINCRISTINE [Suspect]
     Active Substance: VINCRISTINE
     Dosage: RCHOP X 6 CYCLES
     Route: 065
  15. MABTHERA [Suspect]
     Active Substance: RITUXIMAB
     Dosage: R?ICE 4 CYCLES
     Route: 042
     Dates: start: 20190614, end: 20190816
  16. CYCLOPHOSPHAMIDE. [Suspect]
     Active Substance: CYCLOPHOSPHAMIDE
     Indication: DIFFUSE LARGE B-CELL LYMPHOMA
     Dosage: R?HYPERCVAD 2 CYCLES
     Route: 065
     Dates: start: 20190115, end: 20190205
  17. ETOPOSIDE. [Suspect]
     Active Substance: ETOPOSIDE
     Indication: DIFFUSE LARGE B-CELL LYMPHOMA
     Dosage: R?ICE 4 CYCLES
     Route: 065
     Dates: start: 20190614, end: 20190816
  18. ENTECAVIR. [Suspect]
     Active Substance: ENTECAVIR
     Indication: PRODUCT USED FOR UNKNOWN INDICATION
     Route: 065
  19. DOXORUBICIN [Suspect]
     Active Substance: DOXORUBICIN
     Indication: DIFFUSE LARGE B-CELL LYMPHOMA
     Dosage: RCHOP X 6 CYCLES
     Route: 065
  20. PREDNISOLONE. [Suspect]
     Active Substance: PREDNISOLONE
     Indication: DIFFUSE LARGE B-CELL LYMPHOMA
     Dosage: RCHOP X 6 CYCLES
     Route: 065
  21. OXALIPLATIN. [Suspect]
     Active Substance: OXALIPLATIN
     Indication: DIFFUSE LARGE B-CELL LYMPHOMA
     Dosage: GEMOX X 1 CYCLE
     Route: 065

REACTIONS (6)
  - Off label use [Unknown]
  - Neutropenia [Unknown]
  - Breast mass [Unknown]
  - Neoplasm swelling [Unknown]
  - Septic shock [Unknown]
  - Intentional product use issue [Unknown]
